FAERS Safety Report 8810152 (Version 4)
Quarter: 2014Q1

REPORT INFORMATION
  Report Type: Report from Study
  Country: US (occurrence: US)
  Receive Date: 20120926
  Receipt Date: 20140219
  Transmission Date: 20141002
  Serious: Yes (Hospitalization)
  Sender: FDA-Public Use
  Company Number: US-TEVA-360442USA

PATIENT
  Age: 46 Year
  Sex: Female
  Weight: 47.94 kg

DRUGS (15)
  1. CUSTIRSEN [Suspect]
     Indication: CERVIX CARCINOMA
     Dosage: 91.4286 MILLIGRAM DAILY;
     Route: 042
     Dates: start: 20120924, end: 20121108
  2. PACLITAXEL [Suspect]
     Indication: CERVIX CARCINOMA
     Dosage: 9.5238 MG/M2 DAILY;
     Route: 042
     Dates: start: 20120913
  3. CARBOPLATIN [Suspect]
     Indication: CERVIX CARCINOMA
     Dosage: 13.9048 MILLIGRAM DAILY;
     Route: 042
     Dates: start: 20120913
  4. HYDROCODONE W/APAP [Suspect]
     Indication: BACK PAIN
     Dosage: 75/300
     Route: 048
     Dates: start: 20120321
  5. HYDROMORPHONE [Suspect]
     Indication: BACK PAIN
     Route: 048
     Dates: start: 20120901
  6. HYDROMORPHONE [Suspect]
     Indication: PELVIC PAIN
  7. METHADONE [Suspect]
     Indication: BACK PAIN
     Route: 048
     Dates: start: 20120910
  8. METHADONE [Suspect]
     Indication: PELVIC PAIN
  9. ZOFRAN [Concomitant]
     Indication: NAUSEA
     Route: 048
     Dates: start: 201112
  10. ZOFRAN [Concomitant]
     Indication: VOMITING
  11. METOPROLOL [Concomitant]
     Indication: HYPERTENSION
     Dosage: 200 MILLIGRAM DAILY;
     Route: 048
     Dates: start: 20120319
  12. DEXAMETHASONE [Concomitant]
     Route: 048
     Dates: start: 20120912
  13. VITAMIN B6 [Concomitant]
     Indication: SUPPLEMENTATION THERAPY
     Route: 048
     Dates: start: 20120910
  14. PHENERGAN [Concomitant]
     Indication: NAUSEA
     Route: 048
     Dates: start: 201112
  15. PHENERGAN [Concomitant]
     Indication: VOMITING

REACTIONS (1)
  - Mental status changes [Recovered/Resolved]
